FAERS Safety Report 17546500 (Version 5)
Quarter: 2020Q2

REPORT INFORMATION
  Report Type: Report from Study
  Country: AU (occurrence: AU)
  Receive Date: 20200316
  Receipt Date: 20200612
  Transmission Date: 20200713
  Serious: Yes (Other)
  Sender: FDA-Public Use
  Company Number: AU-OTSUKA AUSTRALIA PHARMACEUTICALS PTY LTD-2019_031800

PATIENT
  Age: 47 Year
  Sex: Male

DRUGS (4)
  1. TOLVAPTAN [Suspect]
     Active Substance: TOLVAPTAN
     Dosage: 60 MG, UNK
     Route: 065
  2. TOLVAPTAN [Suspect]
     Active Substance: TOLVAPTAN
     Indication: CONGENITAL CYSTIC KIDNEY DISEASE
     Dosage: 45 MG, UNK
     Route: 065
  3. TOLVAPTAN [Suspect]
     Active Substance: TOLVAPTAN
     Dosage: 30 MG, UNK
     Route: 065
  4. TOLVAPTAN [Suspect]
     Active Substance: TOLVAPTAN
     Dosage: 15 MG, UNK
     Route: 065

REACTIONS (13)
  - Globulins decreased [Recovered/Resolved]
  - Blood chloride increased [Not Recovered/Not Resolved]
  - Gamma-glutamyltransferase increased [Recovered/Resolved]
  - Blood urea increased [Not Recovered/Not Resolved]
  - Injection site pain [Unknown]
  - Blood creatinine increased [Recovering/Resolving]
  - Blood potassium increased [Recovered/Resolved]
  - Blood triglycerides increased [Unknown]
  - Alanine aminotransferase increased [Recovered/Resolved]
  - Blood bicarbonate decreased [Recovered/Resolved]
  - Peripheral arterial occlusive disease [Unknown]
  - Glomerular filtration rate decreased [Recovering/Resolving]
  - Pollakiuria [Unknown]

NARRATIVE: CASE EVENT DATE: 20170821
